FAERS Safety Report 21420918 (Version 2)
Quarter: 2022Q4

REPORT INFORMATION
  Report Type: Report from Study
  Country: CA (occurrence: CA)
  Receive Date: 20221007
  Receipt Date: 20221206
  Transmission Date: 20230112
  Serious: Yes (Other)
  Sender: FDA-Public Use
  Company Number: CA-JNJFOC-20220825941

PATIENT
  Age: 27 Year
  Sex: Male
  Weight: 107 kg

DRUGS (2)
  1. REMICADE [Suspect]
     Active Substance: INFLIXIMAB
     Indication: Colitis
     Dosage: V1EXPIRATION DATE 28-FEB-2025, V2 31-MAR-2025
     Route: 041
  2. REMICADE [Suspect]
     Active Substance: INFLIXIMAB
     Indication: Crohn^s disease

REACTIONS (13)
  - Eye pain [Recovering/Resolving]
  - Drug ineffective [Unknown]
  - Crohn^s disease [Unknown]
  - Scleral hyperaemia [Unknown]
  - Eye inflammation [Not Recovered/Not Resolved]
  - Eye disorder [Not Recovered/Not Resolved]
  - Swelling of eyelid [Not Recovered/Not Resolved]
  - Dry eye [Recovering/Resolving]
  - Eye pruritus [Not Recovered/Not Resolved]
  - Eye injury [Unknown]
  - Decreased appetite [Unknown]
  - Asthenia [Unknown]
  - Fatigue [Unknown]

NARRATIVE: CASE EVENT DATE: 20220101
